FAERS Safety Report 9417126 (Version 2)
Quarter: 2014Q1

REPORT INFORMATION
  Report Type: Report from Study
  Country: CA (occurrence: CA)
  Receive Date: 20130724
  Receipt Date: 20140213
  Transmission Date: 20141002
  Serious: Yes (Hospitalization, Other)
  Sender: FDA-Public Use
  Company Number: CA-UCBSA-091924

PATIENT
  Age: 59 Year
  Sex: Female
  Weight: 63.5 kg

DRUGS (10)
  1. CIMZIA [Suspect]
     Indication: RHEUMATOID ARTHRITIS
     Route: 058
     Dates: start: 20121212
  2. CIMZIA [Suspect]
     Indication: RHEUMATOID ARTHRITIS
     Route: 058
     Dates: start: 20121031, end: 20121128
  3. PREDNISONE [Suspect]
     Dosage: 5 MG
     Route: 048
  4. METHOTREXATE [Suspect]
     Route: 058
     Dates: end: 201307
  5. PANTOLOC [Concomitant]
     Indication: ULCER
  6. COUMADIN [Concomitant]
     Indication: CARDIOVASCULAR DISORDER
  7. EFFEXOR [Concomitant]
     Indication: DEPRESSION
  8. CRESTOR [Concomitant]
     Indication: CEREBROVASCULAR ACCIDENT
  9. CRESTOR [Concomitant]
     Indication: HYPERLIPIDAEMIA
  10. ALPRAZOLAM [Concomitant]
     Indication: DEPRESSION

REACTIONS (3)
  - Urosepsis [Recovered/Resolved]
  - Gallbladder disorder [Recovered/Resolved]
  - Constipation [Unknown]
